FAERS Safety Report 20775200 (Version 1)
Quarter: 2022Q2

REPORT INFORMATION
  Report Type: Spontaneous
  Country: US (occurrence: None)
  Receive Date: 20220502
  Receipt Date: 20220502
  Transmission Date: 20220720
  Serious: No
  Sender: FDA-Public Use
  Company Number: None

PATIENT
  Age: 78 Year
  Sex: Male
  Weight: 72.03 kg

DRUGS (9)
  1. CAPECITABINE [Suspect]
     Active Substance: CAPECITABINE
     Indication: Rectal cancer
     Dosage: OTHER FREQUENCY : 2W,1WOFF;?
     Route: 048
  2. AMLODIPINE BESYLATE [Concomitant]
  3. ELIQUIS [Concomitant]
  4. LASIX [Concomitant]
  5. METOPROLOL SUCCINATE ER [Concomitant]
  6. PANTOPRAZOLE SODIUM [Concomitant]
  7. PROSCAR [Concomitant]
  8. TAMSULOSIN HCI [Concomitant]
  9. VITAMIN C [Concomitant]

REACTIONS (2)
  - Disease progression [None]
  - Tumour marker increased [None]
